FAERS Safety Report 20974167 (Version 2)
Quarter: 2022Q3

REPORT INFORMATION
  Report Type: Other
  Country: GB (occurrence: GB)
  Receive Date: 20220617
  Receipt Date: 20220720
  Transmission Date: 20221027
  Serious: Yes (Hospitalization, Other)
  Sender: FDA-Public Use
  Company Number: GB-ASTELLAS-2022US016867

PATIENT
  Age: 72 Year
  Sex: Male

DRUGS (19)
  1. ATENOLOL [Suspect]
     Active Substance: ATENOLOL
     Indication: Product used for unknown indication
     Dosage: 50 MG, PER DAY, ONCE DAILY (TAKE ONE ONCE DAILY),TABLET (UNCOATED, ORAL)
     Route: 065
  2. ATENOLOL [Suspect]
     Active Substance: ATENOLOL
     Dosage: 50 MG, PER DAY, ONCE DAILY (TAKE ONE ONCE DAILY)
     Route: 048
  3. OMEPRAZOLE [Suspect]
     Active Substance: OMEPRAZOLE
     Indication: Product used for unknown indication
     Dosage: 20 MG,PER DAY, ONCE DAILY (TAKE ONE ONCE DAILY), GASTRO-RESISTANT CAPSULES
     Route: 065
  4. ALLOPURINOL [Suspect]
     Active Substance: ALLOPURINOL
     Indication: Product used for unknown indication
     Dosage: 100 MG, ONCE DAILY (ONE ONCE DAILY) 100 MG QD
     Route: 065
  5. ALLOPURINOL [Suspect]
     Active Substance: ALLOPURINOL
     Dosage: 10 MILLIGRAM, PER DAY, QD
     Route: 065
  6. ALLOPURINOL [Suspect]
     Active Substance: ALLOPURINOL
     Dosage: 100 MG, ONCE DAILY (ONE ONCE DAILY) 100 MG QD (TABLET (UNCOATED, ORAL))
     Route: 048
  7. ALLOPURINOL [Suspect]
     Active Substance: ALLOPURINOL
     Dosage: 10 MILLIGRAM, PER DAY, QD, TABLET (UNCOATED, ORAL)
     Route: 048
  8. METFORMIN [Suspect]
     Active Substance: METFORMIN HYDROCHLORIDE
     Indication: Product used for unknown indication
     Dosage: 500 MG, 8 HRLY,THRICE DAILY (TAKE ONE THREE TIMES A DAY)
     Route: 065
  9. METFORMIN [Suspect]
     Active Substance: METFORMIN HYDROCHLORIDE
     Dosage: 500 MG, 8 HRLY,THRICE DAILY (TAKE ONE THREE TIMES A DAY),TABLET (UNCOATED, ORAL)
     Route: 048
  10. ASPIRIN [Suspect]
     Active Substance: ASPIRIN
     Indication: Product used for unknown indication
     Dosage: 75 MILLIGRAM, EVERY MORNING,75 MG, ONCE DAILY (TAKE ONE EACH MORNING),DISPERSIBLE TABLET
     Route: 065
  11. GOSERELIN [Suspect]
     Active Substance: GOSERELIN
     Indication: Product used for unknown indication
     Dosage: 10.8 MG, ONE EVERY 12 WEEKS. 10.8 MG Q12W
     Route: 065
  12. PIOGLITAZONE [Suspect]
     Active Substance: PIOGLITAZONE
     Indication: Product used for unknown indication
     Dosage: 30 MG, PER DAY, QD, ONCE DAILY (TAKE ONE ONCE DAILY)
     Route: 065
  13. PIOGLITAZONE [Suspect]
     Active Substance: PIOGLITAZONE
     Dosage: 30 MG, PER DAY, QD, ONCE DAILY (TAKE ONE ONCE DAILY),TABLET (UNCOATED, ORAL)
     Route: 048
  14. RAMIPRIL [Suspect]
     Active Substance: RAMIPRIL
     Indication: Product used for unknown indication
     Dosage: 10 MG,PER DYA, QD, ONCE DAILY (TAKE ONE ONCE DAILY),CAPSULE
     Route: 065
  15. SIMVASTATIN [Suspect]
     Active Substance: SIMVASTATIN
     Indication: Product used for unknown indication
     Dosage: 40 MG, PER DAY, QD, ONCE DAILY (ONE AT BEDTIME)
     Route: 065
  16. SIMVASTATIN [Suspect]
     Active Substance: SIMVASTATIN
     Dosage: 40 MG, PER DAY, QD, ONCE DAILY (ONE AT BEDTIME),TABLET (UNCOATED, ORAL)
     Route: 048
  17. TAMSULOSIN [Suspect]
     Active Substance: TAMSULOSIN
     Indication: Product used for unknown indication
     Dosage: 400 MICROGRAM PER DAY, QD, ONCE DAILY (TAKE ONE ONCE DAILY),MODIFIED-RELEASE CAPSULE, HARD
     Route: 065
  18. XTANDI [Suspect]
     Active Substance: ENZALUTAMIDE
     Indication: Product used for unknown indication
     Dosage: 160 MG,PER DAY, ONCE DAILY (TAKE FOUR ONE DAILY)
     Route: 065
  19. XTANDI [Suspect]
     Active Substance: ENZALUTAMIDE
     Dosage: 160 MG,PER DAY, ONCE DAILY (TAKE FOUR ONE DAILY),TABLET (UNCOATED, ORAL)
     Route: 048

REACTIONS (6)
  - Malignant spinal cord compression [Recovered/Resolved]
  - Malignant neoplasm progression [Recovered/Resolved]
  - Hypophosphataemia [Recovered/Resolved]
  - Hypomagnesaemia [Recovered/Resolved]
  - Pruritus [Recovered/Resolved]
  - Erythema [Recovered/Resolved]

NARRATIVE: CASE EVENT DATE: 20220504
